FAERS Safety Report 7084725-8 (Version None)
Quarter: 2010Q4

REPORT INFORMATION
  Report Type: 
  Country: None (occurrence: None)
  Receive Date: 20101104
  Receipt Date: 20101101
  Transmission Date: 20110411
  Serious: Yes (Other)
  Sender: FDA-Public Use
  Company Number: SE-MERCK-1010SWE00006

PATIENT
  Age: 62 Year
  Sex: Female

DRUGS (3)
  1. ZETIA [Suspect]
     Indication: HYPERLIPIDAEMIA
     Route: 048
     Dates: start: 20100401, end: 20100725
  2. METHYLPREDNISOLONE [Concomitant]
     Indication: POLYARTHRITIS
     Route: 048
  3. MYCOPHENOLATE MOFETIL [Concomitant]
     Indication: POLYARTHRITIS
     Route: 065

REACTIONS (1)
  - VITREOUS DETACHMENT [None]
